FAERS Safety Report 9249106 (Version 3)
Quarter: 2013Q3

REPORT INFORMATION
  Report Type: Spontaneous
  Country: DE (occurrence: DE)
  Receive Date: 20130423
  Receipt Date: 20130722
  Transmission Date: 20140515
  Serious: Yes (Life-Threatening, Hospitalization, Other)
  Sender: FDA-Public Use
  Company Number: DE-ELI_LILLY_AND_COMPANY-DE201304004360

PATIENT
  Age: 79 Year
  Sex: Female

DRUGS (16)
  1. CYMBALTA [Suspect]
     Indication: DEPRESSION
     Dosage: 30 MG, QD
     Dates: start: 20120911
  2. CYMBALTA [Interacting]
     Dosage: 60 MG, UNKNOWN
     Route: 048
     Dates: start: 20120912, end: 20120914
  3. RISPERDAL [Interacting]
     Dosage: 0.5 MG, UNKNOWN
     Dates: start: 20120912, end: 20120914
  4. RISPERDAL [Interacting]
     Dosage: 1 MG, UNKNOWN
     Dates: start: 20120912, end: 20120914
  5. RISPERDAL [Interacting]
     Dosage: 1 MG, UNKNOWN
     Dates: start: 20120917, end: 20120918
  6. RISPERDAL [Interacting]
     Dosage: 2 MG, UNKNOWN
     Dates: start: 20120919, end: 20120919
  7. BISOPROLOL [Interacting]
     Indication: BUNDLE BRANCH BLOCK LEFT
     Dosage: 5 MG, UNKNOWN
     Dates: end: 20120914
  8. BISOPROLOL [Interacting]
     Dosage: 5 MG, UNKNOWN
     Dates: start: 20120917, end: 20120917
  9. DIGOXIN [Interacting]
     Indication: BUNDLE BRANCH BLOCK LEFT
     Dosage: 0.1 MG, UNKNOWN
     Dates: end: 20120914
  10. ALLOPURINOL [Concomitant]
     Dosage: 300 MG, UNKNOWN
     Dates: end: 20120914
  11. METFORMIN [Concomitant]
     Dosage: 1700 MG, UNKNOWN
     Dates: end: 20120914
  12. PRAVASTATIN [Concomitant]
     Dosage: 20 MG, UNKNOWN
     Dates: end: 20120914
  13. LISINOPRIL [Concomitant]
     Dosage: 20 MG, UNKNOWN
     Dates: end: 20120914
  14. TOREM [Concomitant]
     Dosage: 15 MG, UNKNOWN
     Dates: end: 20120914
  15. ASS [Concomitant]
     Dosage: 100 MG, UNKNOWN
  16. ISDN [Concomitant]
     Dosage: 80 MG, UNKNOWN
     Dates: end: 20120914

REACTIONS (9)
  - Atrioventricular block second degree [Recovered/Resolved]
  - Postrenal failure [Recovered/Resolved]
  - Metabolic acidosis [Recovered/Resolved]
  - Urinary tract obstruction [Recovered/Resolved]
  - Disturbance in attention [Recovered/Resolved]
  - Aspartate aminotransferase increased [Unknown]
  - Alanine aminotransferase increased [Unknown]
  - Gamma-glutamyltransferase increased [Unknown]
  - Drug interaction [Recovered/Resolved]
